FAERS Safety Report 24755082 (Version 1)
Quarter: 2024Q4

REPORT INFORMATION
  Report Type: Spontaneous
  Country: GB (occurrence: GB)
  Receive Date: 20241219
  Receipt Date: 20241219
  Transmission Date: 20250115
  Serious: Yes (Disabling, Other)
  Sender: PFIZER
  Company Number: None

PATIENT
  Age: 41 Year
  Sex: Female
  Weight: 52 kg

DRUGS (1)
  1. PROVERA [Suspect]
     Active Substance: MEDROXYPROGESTERONE ACETATE
     Indication: Hormone replacement therapy
     Dosage: UNK
     Dates: end: 20241120

REACTIONS (4)
  - Mania [Unknown]
  - Suicidal ideation [Not Recovered/Not Resolved]
  - Tachyphrenia [Unknown]
  - Off label use [Unknown]

NARRATIVE: CASE EVENT DATE: 20241120
